FAERS Safety Report 15945965 (Version 2)
Quarter: 2019Q1

REPORT INFORMATION
  Report Type: Spontaneous
  Country: JP (occurrence: JP)
  Receive Date: 20190211
  Receipt Date: 20190222
  Transmission Date: 20190417
  Serious: No
  Sender: FDA-Public Use
  Company Number: JP-009507513-1902JPN000292J

PATIENT
  Age: 91 Year
  Sex: Male

DRUGS (5)
  1. BAYASPIRIN [Concomitant]
     Active Substance: ASPIRIN
     Dosage: UNK
     Route: 065
  2. NITOROL [Concomitant]
     Active Substance: ISOSORBIDE DINITRATE
     Dosage: UNK
     Route: 065
  3. MENESIT TABLETS - 100 [Suspect]
     Active Substance: CARBIDOPA\LEVODOPA
     Dosage: UNK
     Route: 048
  4. TECIPUL [Concomitant]
     Active Substance: SETIPTILINE
     Dosage: UNK
     Route: 065
  5. LANSOPRAZOLE. [Concomitant]
     Active Substance: LANSOPRAZOLE
     Dosage: UNK
     Route: 065

REACTIONS (1)
  - Oral mucosal discolouration [Unknown]
